FAERS Safety Report 16125225 (Version 3)
Quarter: 2019Q2

REPORT INFORMATION
  Report Type: Spontaneous
  Country: JP (occurrence: JP)
  Receive Date: 20190327
  Receipt Date: 20190510
  Transmission Date: 20190711
  Serious: Yes (Death, Other)
  Sender: FDA-Public Use
  Company Number: PHJP2019JP003695

PATIENT
  Age: 57 Year
  Sex: Female

DRUGS (3)
  1. SANDOSTATINA LAR IM INJECTION [Suspect]
     Active Substance: OCTREOTIDE ACETATE
     Indication: NEUROENDOCRINE TUMOUR
     Dosage: UNK
     Route: 030
  2. AFINITOR [Suspect]
     Active Substance: EVEROLIMUS
     Indication: NEUROENDOCRINE TUMOUR
     Dosage: 10 MG, UNK
     Route: 048
  3. STREPTOZOCIN [Concomitant]
     Active Substance: STREPTOZOCIN
     Indication: NEUROENDOCRINE TUMOUR
     Dosage: UNK
     Route: 065

REACTIONS (6)
  - Malignant neoplasm progression [Fatal]
  - General physical health deterioration [Unknown]
  - Malaise [Recovering/Resolving]
  - Neuroendocrine tumour [Fatal]
  - Stomatitis [Recovering/Resolving]
  - Hepatic failure [Unknown]
